FAERS Safety Report 5279343-8 (Version None)
Quarter: 2007Q1

REPORT INFORMATION
  Report Type: 
  Country: None (occurrence: None)
  Receive Date: 20070328
  Receipt Date: 20060301
  Transmission Date: 20070707
  Serious: No
  Sender: FDA-Public Use
  Company Number: US-AMGEN-US169849

PATIENT
  Sex: Female

DRUGS (8)
  1. NEULASTA [Suspect]
     Indication: CHEMOTHERAPY
     Route: 058
     Dates: start: 20060210, end: 20060210
  2. ISONIAZID [Suspect]
     Route: 065
     Dates: start: 20060202
  3. CARBOPLATIN [Concomitant]
     Route: 065
     Dates: start: 20060207, end: 20060425
  4. ETOPOSIDE [Concomitant]
     Route: 065
     Dates: start: 20060207, end: 20060427
  5. ZOFRAN [Concomitant]
     Route: 065
  6. ALBUTEROL [Concomitant]
     Route: 065
  7. NEXIUM [Concomitant]
     Route: 065
  8. VITAMIN B6 [Concomitant]
     Route: 065

REACTIONS (2)
  - PRURITUS [None]
  - RASH [None]
